FAERS Safety Report 24214429 (Version 2)
Quarter: 2024Q3

REPORT INFORMATION
  Report Type: Other
  Country: US (occurrence: US)
  Receive Date: 20240815
  Receipt Date: 20240822
  Transmission Date: 20241017
  Serious: No
  Sender: TRAVERE THERAPEUTICS
  Company Number: US-TRAVERE-2024TVT00745

PATIENT
  Age: 76 Year
  Sex: Male

DRUGS (2)
  1. FILSPARI [Suspect]
     Active Substance: SPARSENTAN
     Indication: IgA nephropathy
     Route: 048
     Dates: start: 20240724
  2. FILSPARI [Suspect]
     Active Substance: SPARSENTAN
     Route: 048

REACTIONS (4)
  - Hypotension [Recovered/Resolved]
  - Nausea [Unknown]
  - Dizziness [Unknown]
  - Wrong technique in product usage process [Unknown]

NARRATIVE: CASE EVENT DATE: 20240726
